FAERS Safety Report 24275869 (Version 1)
Quarter: 2024Q3

REPORT INFORMATION
  Report Type: Spontaneous
  Country: NO (occurrence: NO)
  Receive Date: 20240903
  Receipt Date: 20240903
  Transmission Date: 20241017
  Serious: Yes (Hospitalization)
  Sender: TAKEDA
  Company Number: None

PATIENT
  Age: 31 Year
  Sex: Female
  Weight: 57 kg

DRUGS (1)
  1. LISDEXAMFETAMINE DIMESYLATE [Suspect]
     Active Substance: LISDEXAMFETAMINE DIMESYLATE
     Indication: Attention deficit hyperactivity disorder
     Dosage: UNK
     Route: 048
     Dates: start: 20240719

REACTIONS (12)
  - Endometrial hyperplasia [Not Recovered/Not Resolved]
  - Paraesthesia [Unknown]
  - Blood pressure decreased [Not Recovered/Not Resolved]
  - Heavy menstrual bleeding [Unknown]
  - Ovulation pain [Unknown]
  - Fatigue [Unknown]
  - Dysmenorrhoea [Unknown]
  - Hyperhidrosis [Unknown]
  - Orthostatic hypotension [Not Recovered/Not Resolved]
  - Heart rate increased [Unknown]
  - Acne [Not Recovered/Not Resolved]
  - Dry mouth [Unknown]

NARRATIVE: CASE EVENT DATE: 20240719
